FAERS Safety Report 5773028-7 (Version None)
Quarter: 2008Q2

REPORT INFORMATION
  Report Type: 
  Country: None (occurrence: None)
  Receive Date: 20080613
  Receipt Date: 20080603
  Transmission Date: 20081010
  Serious: Yes (Other)
  Sender: FDA-Public Use
  Company Number: JP-PFIZER INC-2008048902

PATIENT
  Age: 55 Year
  Sex: Male

DRUGS (1)
  1. CHANTIX [Suspect]
     Indication: NICOTINE DEPENDENCE
     Dosage: DAILY DOSE:.5MG
     Route: 048
     Dates: start: 20080518, end: 20080524

REACTIONS (4)
  - DISTURBANCE IN ATTENTION [None]
  - MALAISE [None]
  - MEMORY IMPAIRMENT [None]
  - SOMNOLENCE [None]
